FAERS Safety Report 4475456-9 (Version None)
Quarter: 2004Q4

REPORT INFORMATION
  Report Type: 
  Country: None (occurrence: None)
  Receive Date: 20041015
  Receipt Date: 20041011
  Transmission Date: 20050328
  Serious: Yes (Hospitalization)
  Sender: FDA-Public Use
  Company Number: GB-ROCHE-382949

PATIENT
  Age: 67 Year
  Sex: Female

DRUGS (10)
  1. ORLISTAT [Suspect]
     Indication: DRUG USE FOR UNKNOWN INDICATION
     Route: 048
  2. QUININE SULPHATE [Concomitant]
  3. DIGOXIN [Concomitant]
  4. LANSOPRAZOLE [Concomitant]
  5. WARFARIN SODIUM [Concomitant]
  6. LISINOPRIL [Concomitant]
  7. RANITIDINE [Concomitant]
  8. DILTIAZEM [Concomitant]
  9. CO-CODAMOL [Concomitant]
  10. THEOPHYLLINE [Concomitant]

REACTIONS (1)
  - PANCREATITIS ACUTE [None]
